FAERS Safety Report 5774310-X (Version None)
Quarter: 2008Q2

REPORT INFORMATION
  Report Type: 
  Country: None (occurrence: None)
  Receive Date: 20080616
  Receipt Date: 20080604
  Transmission Date: 20081010
  Serious: Yes (Other)
  Sender: FDA-Public Use
  Company Number: BR-PFIZER INC-2007105830

PATIENT
  Sex: Male
  Weight: 81 kg

DRUGS (4)
  1. CHANTIX [Suspect]
     Indication: SMOKING CESSATION THERAPY
     Route: 048
     Dates: start: 20070101, end: 20080101
  2. RIVOTRIL [Concomitant]
     Route: 048
  3. PAROXETINE HCL [Concomitant]
     Route: 048
     Dates: start: 20070101
  4. NICOTINE [Concomitant]
     Dates: end: 20080101

REACTIONS (3)
  - DYSPHONIA [None]
  - LARYNGEAL CANCER [None]
  - OBSTRUCTIVE AIRWAYS DISORDER [None]
